FAERS Safety Report 25131087 (Version 1)
Quarter: 2025Q1

REPORT INFORMATION
  Report Type: Spontaneous
  Country: US (occurrence: US)
  Receive Date: 20250327
  Receipt Date: 20250327
  Transmission Date: 20250409
  Serious: Yes (Hospitalization, Other)
  Sender: Y-MABS THERAPEUTICS
  Company Number: US-Y-mAbs Therapeutics-2173756

PATIENT
  Age: 10 Year
  Sex: Female
  Weight: 23 kg

DRUGS (8)
  1. DANYELZA [Suspect]
     Active Substance: NAXITAMAB-GQGK
     Indication: Neuroblastoma recurrent
     Dates: start: 20250131, end: 20250205
  2. NICARDIPINE HYDROCHLORIDE [Concomitant]
     Active Substance: NICARDIPINE HYDROCHLORIDE
  3. HYDRALAZINE [Concomitant]
     Active Substance: HYDRALAZINE HYDROCHLORIDE
  4. ISRADIPINE [Concomitant]
     Active Substance: ISRADIPINE
  5. CLONIDINE [Concomitant]
     Active Substance: CLONIDINE
  6. VIMPAT [Concomitant]
     Active Substance: LACOSAMIDE
  7. LEVETIRACETAM [Concomitant]
     Active Substance: LEVETIRACETAM
  8. LABETALOL [Concomitant]
     Active Substance: LABETALOL

REACTIONS (4)
  - Posterior reversible encephalopathy syndrome [Recovered/Resolved]
  - Hypertension [Unknown]
  - Hypotension [Unknown]
  - Hypotension [Unknown]
